FAERS Safety Report 17711748 (Version 1)
Quarter: 2020Q2

REPORT INFORMATION
  Report Type: Spontaneous
  Country: CZ (occurrence: CZ)
  Receive Date: 20200427
  Receipt Date: 20200427
  Transmission Date: 20200714
  Serious: Yes (Hospitalization)
  Sender: FDA-Public Use
  Company Number: CZ-STRIDES ARCOLAB LIMITED-2020SP005114

PATIENT
  Age: 8 Decade
  Sex: Female

DRUGS (1)
  1. MEMANTINE. [Suspect]
     Active Substance: MEMANTINE
     Indication: DEMENTIA ALZHEIMER^S TYPE
     Dosage: 20 MILLIGRAM PER DAY, MAINTENANCE DOSE
     Route: 065

REACTIONS (3)
  - Posture abnormal [Unknown]
  - Chorea [Recovered/Resolved]
  - Balance disorder [Unknown]
